FAERS Safety Report 7301339-2 (Version None)
Quarter: 2010Q4

REPORT INFORMATION
  Report Type: 
  Country: None (occurrence: None)
  Receive Date: 20101229
  Receipt Date: 20101025
  Transmission Date: 20110411
  Serious: No
  Sender: FDA-Public Use
  Company Number: 1000017000

PATIENT
  Age: 28 Year
  Sex: Female

DRUGS (2)
  1. BYSTOLIC [Suspect]
     Indication: TACHYCARDIA
     Dosage: 2.5 MG (2.5 MG, 1 IN 1 D), ORAL
     Route: 048
     Dates: start: 20100801, end: 20100801
  2. BYSTOLIC [Suspect]
     Indication: TACHYCARDIA
     Dosage: 5 MG (5 MG, 1 IN 1 D), ORAL
     Route: 048
     Dates: start: 20100801, end: 20101023

REACTIONS (6)
  - BLOOD PRESSURE DECREASED [None]
  - DIZZINESS [None]
  - ERYTHEMA [None]
  - FATIGUE [None]
  - OEDEMA PERIPHERAL [None]
  - SWELLING FACE [None]
